FAERS Safety Report 13374342 (Version 2)
Quarter: 2017Q3

REPORT INFORMATION
  Report Type: Report from Study
  Country: US (occurrence: US)
  Receive Date: 20170327
  Receipt Date: 20170709
  Transmission Date: 20171127
  Serious: No
  Sender: FDA-Public Use
  Company Number: US-009507513-1703USA008802

PATIENT
  Age: 29 Year
  Sex: Female

DRUGS (1)
  1. NEXPLANON [Suspect]
     Active Substance: ETONOGESTREL
     Indication: CONTRACEPTION
     Dosage: 1 IMPLANT, UNK
     Route: 059
     Dates: start: 2014

REACTIONS (6)
  - Mood altered [Unknown]
  - Therapeutic response unexpected [Unknown]
  - Hypomenorrhoea [Unknown]
  - Oligomenorrhoea [Unknown]
  - Metrorrhagia [Unknown]
  - Implant site bruising [Unknown]

NARRATIVE: CASE EVENT DATE: 2014
